FAERS Safety Report 5545278-6 (Version None)
Quarter: 2007Q4

REPORT INFORMATION
  Report Type: 
  Country: None (occurrence: None)
  Receive Date: 20071211
  Receipt Date: 20071203
  Transmission Date: 20080405
  Serious: Yes (Hospitalization, Other)
  Sender: FDA-Public Use
  Company Number: PHRM2007FR02724

PATIENT
  Age: 77 Year
  Sex: Female

DRUGS (5)
  1. KARDEGIC [Suspect]
     Dosage: 160 MG, QD
     Route: 048
     Dates: end: 20070813
  2. LUDIOMIL [Concomitant]
     Indication: DEPRESSION
  3. TRIVASTAL [Concomitant]
     Indication: DEPRESSION
  4. CARDENSIEL [Concomitant]
  5. VOLTAREN [Suspect]
     Indication: OSTEOARTHRITIS
     Route: 048
     Dates: end: 20070807

REACTIONS (4)
  - ATRIAL FIBRILLATION [None]
  - GASTRITIS HAEMORRHAGIC [None]
  - HAEMOGLOBIN DECREASED [None]
  - MELAENA [None]
